FAERS Safety Report 17283500 (Version 9)
Quarter: 2020Q2

REPORT INFORMATION
  Report Type: Report from Study
  Country: US (occurrence: US)
  Receive Date: 20200117
  Receipt Date: 20200428
  Transmission Date: 20200713
  Serious: Yes (Hospitalization)
  Sender: FDA-Public Use
  Company Number: NVSC2020US007263

PATIENT
  Age: 16 Year
  Sex: Female
  Weight: 84.9 kg

DRUGS (9)
  1. INC424A [Suspect]
     Active Substance: RUXOLITINIB
     Indication: PRECURSOR B-LYMPHOBLASTIC LYMPHOMA
     Dosage: 95 MG, BID, DAY 1 TO 14
     Route: 048
     Dates: start: 20190709
  2. METHOTREXATE. [Concomitant]
     Active Substance: METHOTREXATE
     Indication: PRECURSOR B-LYMPHOBLASTIC LYMPHOMA
     Dosage: 15 MG
     Route: 037
     Dates: start: 20191212
  3. DEXAMETHASONE SODIUM PHOSPHATE. [Suspect]
     Active Substance: DEXAMETHASONE SODIUM PHOSPHATE
     Indication: PRECURSOR B-LYMPHOBLASTIC LYMPHOMA
     Dosage: 9.75 MG, BID (DAYS 1-7, 15-21)
     Route: 048
     Dates: start: 20191212
  4. CYTARABINE. [Concomitant]
     Active Substance: CYTARABINE
     Indication: PRECURSOR B-LYMPHOBLASTIC LYMPHOMA
     Dosage: 146 MILLIGRAM (DAYS 29-30)
     Route: 042
     Dates: start: 20200127
  5. PEGASPARGASE [Suspect]
     Active Substance: PEGASPARGASE
     Indication: PRECURSOR B-LYMPHOBLASTIC LYMPHOMA
     Dosage: 3750 UNITS (DAY 4)
     Route: 042
     Dates: start: 20191217
  6. VINCRISTINE [Suspect]
     Active Substance: VINCRISTINE
     Indication: PRECURSOR B-LYMPHOBLASTIC LYMPHOMA
     Dosage: 15 MILLIGRAM (DAYS 1, 8, 15)
     Route: 042
     Dates: start: 20191212
  7. DOXORUBICIN [Suspect]
     Active Substance: DOXORUBICIN
     Indication: PRECURSOR B-LYMPHOBLASTIC LYMPHOMA
     Dosage: 50 MILLIGRAM (DAYS 1, 8, 15)
     Route: 042
     Dates: start: 20191212
  8. CYCLOPHOSPHAMIDE. [Concomitant]
     Active Substance: CYCLOPHOSPHAMIDE
     Indication: PRECURSOR B-LYMPHOBLASTIC LYMPHOMA
     Dosage: 1950 MILLIGRAM (DAY 29)
     Route: 042
     Dates: start: 20200127
  9. THIOGUANINE [Concomitant]
     Active Substance: THIOGUANINE
     Indication: PRECURSOR B-LYMPHOBLASTIC LYMPHOMA
     Dosage: 80 MILLIGRAM (DAYS 29-30)
     Route: 048
     Dates: start: 20200127

REACTIONS (4)
  - Asthenia [Recovered/Resolved]
  - Hypoxia [Recovered/Resolved]
  - Septic shock [Recovered/Resolved]
  - Pain [Recovered/Resolved]

NARRATIVE: CASE EVENT DATE: 20200103
